FAERS Safety Report 8057207-4 (Version None)
Quarter: 2012Q1

REPORT INFORMATION
  Report Type: 
  Country: None (occurrence: None)
  Receive Date: 20120119
  Receipt Date: 20120109
  Transmission Date: 20120608
  Serious: Yes (Other)
  Sender: FDA-Public Use
  Company Number: PHEH2008US06887

PATIENT
  Sex: Female

DRUGS (2)
  1. VIVELLE-DOT [Suspect]
     Dosage: 0.075 MG, TWICE WEEKLY
     Route: 062
     Dates: start: 20080101
  2. VIVELLE-DOT [Suspect]
     Indication: ARTIFICIAL MENOPAUSE
     Dosage: 0.05 MG
     Route: 062
     Dates: start: 20080301, end: 20080101

REACTIONS (5)
  - DRUG INEFFECTIVE [None]
  - NERVOUSNESS [None]
  - PAIN IN EXTREMITY [None]
  - BLADDER PROLAPSE [None]
  - FUNGAL INFECTION [None]
